FAERS Safety Report 5876205-X (Version None)
Quarter: 2008Q3

REPORT INFORMATION
  Report Type: 
  Country: None (occurrence: None)
  Receive Date: 20080910
  Receipt Date: 20080909
  Transmission Date: 20090109
  Serious: Yes (Hospitalization, Other)
  Sender: FDA-Public Use
  Company Number: US-RB-003886-08

PATIENT
  Sex: Female

DRUGS (2)
  1. SUBOXONE [Suspect]
     Route: 060
     Dates: start: 20080902, end: 20080903
  2. SUBOXONE [Suspect]
     Route: 060
     Dates: start: 20080904, end: 20080905

REACTIONS (3)
  - CATATONIA [None]
  - DELUSION [None]
  - INCONTINENCE [None]
